FAERS Safety Report 14750582 (Version 2)
Quarter: 2018Q2

REPORT INFORMATION
  Report Type: Spontaneous
  Country: US (occurrence: US)
  Receive Date: 20180412
  Receipt Date: 20180511
  Transmission Date: 20180711
  Serious: No
  Sender: FDA-Public Use
  Company Number: US-ASTRAZENECA-2018SE38970

PATIENT
  Sex: Female
  Weight: 54.4 kg

DRUGS (1)
  1. TUDORZA PRESSAIR [Suspect]
     Active Substance: ACLIDINIUM BROMIDE
     Indication: ASTHMA
     Route: 055

REACTIONS (6)
  - Dyspnoea [Unknown]
  - Device malfunction [Unknown]
  - Drug dose omission [Unknown]
  - Fatigue [Unknown]
  - Wrong technique in product usage process [Unknown]
  - Intentional product misuse [Unknown]
